FAERS Safety Report 7805340 (Version 3)
Quarter: 2012Q4

REPORT INFORMATION
  Report Type: 
  Country: CN (occurrence: CN)
  Receive Date: 20110209
  Receipt Date: 20121211
  Transmission Date: 20130627
  Serious: Yes (Other)
  Sender: FDA-Public Use
  Company Number: PHHY2011CN06840

PATIENT
  Age: 49 Year
  Sex: Female

DRUGS (1)
  1. LESCOL [Suspect]
     Indication: HYPERCHOLESTEROLAEMIA
     Dosage: 40 mg, QD
     Route: 048
     Dates: start: 20101124, end: 20101222

REACTIONS (3)
  - Drug-induced liver injury [Recovering/Resolving]
  - Jaundice [Unknown]
  - Asthenia [Unknown]
